FAERS Safety Report 9186706 (Version 1)
Quarter: 2012Q4

REPORT INFORMATION
  Report Type: 
  Country: US (occurrence: US)
  Receive Date: 20121102
  Receipt Date: 20121102
  Transmission Date: 20130627
  Serious: Yes (Disabling, Other)
  Sender: FDA-Public Use
  Company Number: US-JNJFOC-20121002750

PATIENT
  Sex: Male

DRUGS (4)
  1. REMICADE [Suspect]
     Indication: COLITIS ULCERATIVE
     Route: 042
     Dates: start: 201201
  2. ASACOL [Concomitant]
     Indication: COLITIS ULCERATIVE
     Route: 065
  3. TRILIPIX [Concomitant]
     Indication: HYPERLIPIDAEMIA
     Route: 065
  4. METOPROLOL [Concomitant]
     Indication: HYPERTENSION
     Route: 065

REACTIONS (2)
  - Psoriasis [Unknown]
  - Drug eruption [Recovering/Resolving]
